FAERS Safety Report 4757451-5 (Version None)
Quarter: 2005Q3

REPORT INFORMATION
  Report Type: 
  Country: None (occurrence: None)
  Receive Date: 20050831
  Receipt Date: 20050819
  Transmission Date: 20060218
  Serious: Yes (Hospitalization)
  Sender: FDA-Public Use
  Company Number: CH-ROCHE-414876

PATIENT
  Age: 42 Year
  Sex: Female

DRUGS (3)
  1. CAPECITABINE [Suspect]
     Indication: BILIARY CANCER METASTATIC
     Route: 048
     Dates: start: 20050404, end: 20050810
  2. GEMCITABINE [Suspect]
     Indication: BILIARY CANCER METASTATIC
     Route: 042
     Dates: start: 20050404, end: 20050809
  3. KENDURAL [Concomitant]
     Route: 048
     Dates: start: 20050411

REACTIONS (2)
  - ADHESION [None]
  - ILEUS [None]
